FAERS Safety Report 9422946 (Version 1)
Quarter: 2013Q3

REPORT INFORMATION
  Report Type: Spontaneous
  Country: CA (occurrence: CA)
  Receive Date: 20130726
  Receipt Date: 20130726
  Transmission Date: 20140515
  Serious: Yes (Hospitalization)
  Sender: FDA-Public Use
  Company Number: CA-B.I. PHARMACEUTICALS,INC./RIDGEFIELD-2013-BI-21312BP

PATIENT
  Age: 39 Year
  Sex: Female
  Weight: 69.85 kg

DRUGS (1)
  1. MIRAPEX [Suspect]
     Indication: RESTLESS LEGS SYNDROME
     Dates: start: 20061206, end: 201306

REACTIONS (7)
  - Suicide attempt [Recovered/Resolved]
  - Pathological gambling [Recovered/Resolved]
  - Compulsive shopping [Unknown]
  - Anxiety [Unknown]
  - Depression [Unknown]
  - Adjustment disorder [Unknown]
  - Suicidal ideation [Recovered/Resolved]
